FAERS Safety Report 12457403 (Version 1)
Quarter: 2016Q2

REPORT INFORMATION
  Report Type: Other
  Country: GB (occurrence: GB)
  Receive Date: 20160610
  Receipt Date: 20160610
  Transmission Date: 20160815
  Serious: Yes (Other)
  Sender: FDA-Public Use
  Company Number: GB-MYLANLABS-2016M1023660

PATIENT

DRUGS (1)
  1. PRAVASTATIN [Suspect]
     Active Substance: PRAVASTATIN\PRAVASTATIN SODIUM
     Indication: BLOOD CHOLESTEROL INCREASED
     Dosage: 10 MG, UNK
     Route: 048
     Dates: start: 20160427, end: 20160511

REACTIONS (3)
  - Skin exfoliation [Recovering/Resolving]
  - Rash pruritic [Recovering/Resolving]
  - Lip swelling [Recovered/Resolved]

NARRATIVE: CASE EVENT DATE: 20160427
